FAERS Safety Report 9150253 (Version 1)
Quarter: 2013Q1

REPORT INFORMATION
  Report Type: Spontaneous
  Country: US (occurrence: None)
  Receive Date: 20130305
  Receipt Date: 20130305
  Transmission Date: 20140127
  Serious: Yes (Life-Threatening, Hospitalization)
  Sender: FDA-Public Use
  Company Number: None

PATIENT
  Age: 57 Year
  Sex: Female
  Weight: 58 kg

DRUGS (2)
  1. RIVAROXIBAN [Suspect]
     Indication: ATRIAL FIBRILLATION
     Route: 048
     Dates: start: 20130221, end: 20130303
  2. WARFARIN [Suspect]
     Indication: ATRIAL FIBRILLATION
     Dates: start: 20130118, end: 20130220

REACTIONS (3)
  - Diarrhoea [None]
  - Lower gastrointestinal haemorrhage [None]
  - Anaemia [None]
